FAERS Safety Report 25756079 (Version 1)
Quarter: 2025Q3

REPORT INFORMATION
  Report Type: Report from Study
  Country: US (occurrence: US)
  Receive Date: 20250903
  Receipt Date: 20250903
  Transmission Date: 20251021
  Serious: Yes (Other)
  Sender: BAYER HEALTHCARE LLC
  Company Number: US-BAYER-2025A114113

PATIENT
  Age: 5 Year

DRUGS (2)
  1. XARELTO [Suspect]
     Active Substance: RIVAROXABAN
  2. ASPIRIN [Suspect]
     Active Substance: ASPIRIN

REACTIONS (3)
  - Epistaxis [None]
  - Product use issue [None]
  - Product prescribing issue [None]
